FAERS Safety Report 4332317-3 (Version None)
Quarter: 2004Q2

REPORT INFORMATION
  Report Type: 
  Country: None (occurrence: None)
  Receive Date: 20040401
  Receipt Date: 20040316
  Transmission Date: 20050107
  Serious: Yes (Hospitalization)
  Sender: FDA-Public Use
  Company Number: WAES 0206FRA00025

PATIENT
  Sex: Female

DRUGS (15)
  1. CRIXIVAN [Suspect]
     Indication: HIV INFECTION
     Dosage: PO
     Route: 048
     Dates: end: 20000201
  2. CAP DIDANOSINE [Suspect]
     Indication: HIV INFECTION
     Dosage: 400 M/DAILY, PO
     Route: 048
     Dates: start: 19990101, end: 20000214
  3. CAP DIDANOSINE [Suspect]
     Indication: HIV INFECTION
     Dosage: 400 M/DAILY, PO
     Route: 048
     Dates: start: 20000620
  4. CAP STAVUDINE [Suspect]
     Indication: HIV INFECTION
     Dosage: PO
     Route: 048
     Dates: start: 19990101, end: 20000201
  5. CAP STAVUDINE [Suspect]
     Indication: HIV INFECTION
     Dosage: PO
     Route: 048
     Dates: start: 20000620
  6. INFUSION (FORM) ZIDOVUIDINE [Suspect]
     Indication: PROPHYLAXIS
     Dosage: IV
     Route: 042
     Dates: start: 20001013, end: 20001013
  7. NELFINAVIR MESYLATE [Suspect]
     Indication: HIV INFECTION
     Dosage: 2500 MG/DAILY, PO
     Route: 048
     Dates: start: 20000601
  8. SYR STAVUDINE [Suspect]
     Indication: PROPHYLAXIS AGAINST HIV INFECTION
     Dosage: PO
     Route: 048
     Dates: start: 20001013, end: 20001123
  9. BETAMETHASONE DIPROPIONATE [Concomitant]
  10. BROMAZEPAM [Concomitant]
  11. DEXCHLORPHENIRAMINE MALEATE [Concomitant]
  12. ECONAZOLE NITRATE [Concomitant]
  13. FENTICONAZOLE NITRATE [Concomitant]
  14. IRON [Concomitant]
  15. MULTIVITAMIN [Concomitant]

REACTIONS (21)
  - ABDOMINAL DISTENSION [None]
  - ALANINE AMINOTRANSFERASE INCREASED [None]
  - ASPARTATE AMINOTRANSFERASE INCREASED [None]
  - BLOOD KETONE BODY DECREASED [None]
  - BLOOD TRIGLYCERIDES INCREASED [None]
  - CAESAREAN SECTION [None]
  - CONSTIPATION [None]
  - DIARRHOEA NEONATAL [None]
  - DRUG EXPOSURE DURING PREGNANCY [None]
  - GASTROOESOPHAGEAL REFLUX DISEASE [None]
  - LACTATE PYRUVATE RATIO INCREASED [None]
  - LACTIC ACIDOSIS [None]
  - MACROCYTOSIS [None]
  - MASTITIS [None]
  - METABOLIC FUNCTION TEST ABNORMAL [None]
  - NEONATAL DISORDER [None]
  - NEUTROPENIA NEONATAL [None]
  - PLATELET COUNT DECREASED [None]
  - PLATELET COUNT INCREASED [None]
  - PREGNANCY [None]
  - RHINITIS [None]
